FAERS Safety Report 5105163-0 (Version None)
Quarter: 2006Q3

REPORT INFORMATION
  Report Type: 
  Country: None (occurrence: None)
  Receive Date: 20060911
  Receipt Date: 20060829
  Transmission Date: 20061208
  Serious: Yes (Other)
  Sender: FDA-Public Use
  Company Number: 2006105908

PATIENT
  Age: 75 Year
  Sex: Female
  Weight: 56.246 kg

DRUGS (6)
  1. NEURONTIN [Suspect]
     Indication: HERPES ZOSTER
     Dates: end: 20050101
  2. ELAVIL [Suspect]
     Indication: HERPES ZOSTER
     Dates: start: 20060101, end: 20060101
  3. DRUG, UNSPECIFIED (DRUG, UNSPECIFIED) [Concomitant]
  4. LORTAB [Concomitant]
  5. GLYBURIDE [Concomitant]
  6. LIDOCAINE [Concomitant]

REACTIONS (5)
  - BLOOD POTASSIUM DECREASED [None]
  - DYSSTASIA [None]
  - FALL [None]
  - FEELING DRUNK [None]
  - GAIT DISTURBANCE [None]
